FAERS Safety Report 7077772-3 (Version None)
Quarter: 2010Q4

REPORT INFORMATION
  Report Type: 
  Country: None (occurrence: None)
  Receive Date: 20101101
  Receipt Date: 20101018
  Transmission Date: 20110411
  Serious: Yes (Hospitalization, Other)
  Sender: FDA-Public Use
  Company Number: PHHY2010JP67027

PATIENT
  Age: 82 Year
  Sex: Female

DRUGS (1)
  1. VOLTAREN [Suspect]
     Indication: PAIN IN EXTREMITY
     Route: 048

REACTIONS (8)
  - COLECTOMY [None]
  - COLON CANCER [None]
  - COLONIC STENOSIS [None]
  - FAECES DISCOLOURED [None]
  - GASTROINTESTINAL ULCER [None]
  - LARGE INTESTINAL ULCER [None]
  - LYMPHADENOPATHY [None]
  - MELAENA [None]
